FAERS Safety Report 9232706 (Version 1)
Quarter: 2013Q2

REPORT INFORMATION
  Report Type: Spontaneous
  Country: US (occurrence: None)
  Receive Date: 20130415
  Receipt Date: 20130415
  Transmission Date: 20140414
  Serious: No
  Sender: FDA-Public Use
  Company Number: None

PATIENT
  Sex: 0

DRUGS (1)
  1. NALOXONE [Suspect]
     Dates: start: 20130324, end: 20130324

REACTIONS (5)
  - Dysgeusia [None]
  - Chills [None]
  - Hyperhidrosis [None]
  - Vomiting [None]
  - Drug withdrawal syndrome [None]
